FAERS Safety Report 19120643 (Version 1)
Quarter: 2021Q2

REPORT INFORMATION
  Report Type: Spontaneous
  Country: US (occurrence: US)
  Receive Date: 20210410
  Receipt Date: 20210410
  Transmission Date: 20210717
  Serious: Yes (Other)
  Sender: FDA-Public Use
  Company Number: None

PATIENT
  Age: 63 Year
  Sex: Male
  Weight: 94.5 kg

DRUGS (5)
  1. PROZAC [Concomitant]
     Active Substance: FLUOXETINE HYDROCHLORIDE
  2. VIT 12 [Concomitant]
  3. XANAX [Suspect]
     Active Substance: ALPRAZOLAM
     Indication: HEART RATE IRREGULAR
     Dosage: QUANTITY:1 CAPSULE(S);?
     Route: 048
     Dates: start: 20131206, end: 20131227
  4. ASPERCREME NOS [Concomitant]
     Active Substance: MENTHOL\TROLAMINE SALICYLATE
  5. KLONOPIN [Concomitant]
     Active Substance: CLONAZEPAM

REACTIONS (2)
  - Peripheral coldness [None]
  - Headache [None]

NARRATIVE: CASE EVENT DATE: 20131225
